FAERS Safety Report 12598832 (Version 3)
Quarter: 2016Q3

REPORT INFORMATION
  Report Type: Spontaneous
  Country: US (occurrence: US)
  Receive Date: 20160727
  Receipt Date: 20160919
  Transmission Date: 20161109
  Serious: No
  Sender: FDA-Public Use
  Company Number: US-GLAXOSMITHKLINE-US2016GSK104992

PATIENT
  Age: 54 Year
  Sex: Male

DRUGS (3)
  1. TANZEUM [Suspect]
     Active Substance: ALBIGLUTIDE
     Indication: TYPE 2 DIABETES MELLITUS
     Dosage: 30 MG, WE
     Route: 042
     Dates: start: 20160714
  2. TANZEUM [Suspect]
     Active Substance: ALBIGLUTIDE
     Dosage: 30 MG, WE
     Route: 042
     Dates: start: 201607
  3. NYSTATIN. [Concomitant]
     Active Substance: NYSTATIN

REACTIONS (11)
  - Decreased appetite [Unknown]
  - Influenza [Unknown]
  - Hair growth abnormal [Unknown]
  - Injection site vesicles [Recovered/Resolved]
  - Nasopharyngitis [Unknown]
  - Influenza like illness [Recovered/Resolved]
  - Fatigue [Unknown]
  - Hypersomnia [Unknown]
  - Abdominal distension [Unknown]
  - Therapeutic response unexpected [Unknown]
  - Nasal congestion [Unknown]

NARRATIVE: CASE EVENT DATE: 201607
